FAERS Safety Report 26064853 (Version 1)
Quarter: 2025Q4

REPORT INFORMATION
  Report Type: Report from Study
  Country: PA (occurrence: PA)
  Receive Date: 20251119
  Receipt Date: 20251119
  Transmission Date: 20260118
  Serious: Yes (Hospitalization, Disabling)
  Sender: NOVARTIS
  Company Number: PA-002147023-NVSC2025PA177171

PATIENT
  Age: 57 Year
  Sex: Female

DRUGS (2)
  1. EXFORGE HCT [Suspect]
     Active Substance: AMLODIPINE BESYLATE\HYDROCHLOROTHIAZIDE\VALSARTAN
     Indication: Hypertension
     Dosage: 1 DOSAGE FORM, QD
     Route: 048
  2. DIOVAN [Suspect]
     Active Substance: VALSARTAN
     Indication: Hypertension
     Dosage: 160 MG, QD
     Route: 048
     Dates: start: 202511

REACTIONS (4)
  - Blood pressure decreased [Recovering/Resolving]
  - Syncope [Recovered/Resolved]
  - Dysphonia [Unknown]
  - Injury [Unknown]

NARRATIVE: CASE EVENT DATE: 20251105
